FAERS Safety Report 25941121 (Version 1)
Quarter: 2025Q4

REPORT INFORMATION
  Report Type: Spontaneous
  Country: US (occurrence: None)
  Receive Date: 20251018
  Receipt Date: 20251018
  Transmission Date: 20260118
  Serious: Yes (Life-Threatening, Hospitalization, Disabling)
  Sender: FDA-CTU
  Company Number: None

PATIENT
  Age: 30 Year
  Sex: Male
  Weight: 76.5 kg

DRUGS (12)
  1. ESCITALOPRAM [Suspect]
     Active Substance: ESCITALOPRAM OXALATE
     Indication: Anxiety
     Dosage: OTHER QUANTITY : 1 TABLET(S);?FREQUENCY : DAILY;?
     Route: 048
  2. ESCITALOPRAM [Suspect]
     Active Substance: ESCITALOPRAM OXALATE
     Indication: Obsessive-compulsive disorder
  3. ESCITALOPRAM [Suspect]
     Active Substance: ESCITALOPRAM OXALATE
     Indication: Depression
  4. PAXIL [Suspect]
     Active Substance: PAROXETINE HYDROCHLORIDE
  5. ZOLOFT [Suspect]
     Active Substance: SERTRALINE HYDROCHLORIDE
  6. 20mg Lexapro [Concomitant]
  7. CETIRIZINE [Concomitant]
     Active Substance: CETIRIZINE HYDROCHLORIDE
  8. ALBUTEROL [Concomitant]
     Active Substance: ALBUTEROL
  9. CREATINE [Concomitant]
     Active Substance: CREATINE
  10. COENZYME Q10 [Concomitant]
     Active Substance: DIETARY SUPPLEMENT\UBIDECARENONE
  11. AMINO ACIDS [Concomitant]
     Active Substance: AMINO ACIDS
  12. LEVOMEFOLATE CALCIUM [Concomitant]
     Active Substance: LEVOMEFOLATE CALCIUM

REACTIONS (69)
  - Drug ineffective [None]
  - Flat affect [None]
  - Middle insomnia [None]
  - Stress [None]
  - Restlessness [None]
  - Muscle contractions involuntary [None]
  - Abdominal pain upper [None]
  - Decreased appetite [None]
  - Weight decreased [None]
  - Dizziness [None]
  - Withdrawal syndrome [None]
  - Anxiety [None]
  - Crying [None]
  - Depressed mood [None]
  - Mood swings [None]
  - Asthenia [None]
  - Fatigue [None]
  - Lethargy [None]
  - Malaise [None]
  - Disturbance in attention [None]
  - Insomnia [None]
  - Appetite disorder [None]
  - Suicidal ideation [None]
  - Mania [None]
  - Nervousness [None]
  - Panic attack [None]
  - Chest pain [None]
  - Tremor [None]
  - Feeling jittery [None]
  - Tremor [None]
  - Merycism [None]
  - Obsessive thoughts [None]
  - Irritability [None]
  - Agitation [None]
  - Impulsive behaviour [None]
  - Aggression [None]
  - Amnesia [None]
  - Hallucination, visual [None]
  - Dissociation [None]
  - Derealisation [None]
  - Autoscopy [None]
  - Hyperhidrosis [None]
  - Chills [None]
  - Eye pain [None]
  - Influenza like illness [None]
  - Pain [None]
  - Nausea [None]
  - Diarrhoea [None]
  - Abdominal pain [None]
  - Abdominal distension [None]
  - Impaired gastric emptying [None]
  - Food allergy [None]
  - Balance disorder [None]
  - Fall [None]
  - Vertigo [None]
  - Dizziness [None]
  - Gait disturbance [None]
  - Coordination abnormal [None]
  - Apraxia [None]
  - Gait disturbance [None]
  - Motion sickness [None]
  - Hypoaesthesia [None]
  - Paraesthesia [None]
  - Electric shock sensation [None]
  - Electric shock sensation [None]
  - Visual impairment [None]
  - Salivary hypersecretion [None]
  - Vision blurred [None]
  - Muscle twitching [None]

NARRATIVE: CASE EVENT DATE: 20180501
